FAERS Safety Report 13922113 (Version 1)
Quarter: 2017Q3

REPORT INFORMATION
  Report Type: Spontaneous
  Country: US (occurrence: US)
  Receive Date: 20170830
  Receipt Date: 20170830
  Transmission Date: 20171127
  Serious: No
  Sender: FDA-Public Use
  Company Number: US-TOLMAR, INC.-2017US009058

PATIENT
  Sex: Female

DRUGS (1)
  1. ELIGARD [Suspect]
     Active Substance: LEUPROLIDE ACETATE
     Indication: MENORRHAGIA
     Dosage: UNK
     Route: 058

REACTIONS (2)
  - Off label use [Unknown]
  - Contraindicated drug prescribed [Unknown]
